FAERS Safety Report 5823884-9 (Version None)
Quarter: 2008Q3

REPORT INFORMATION
  Report Type: 
  Country: None (occurrence: None)
  Receive Date: 20080725
  Receipt Date: 20080710
  Transmission Date: 20090109
  Serious: Yes (Other)
  Sender: FDA-Public Use
  Company Number: JP-GENENTECH-264616

PATIENT
  Age: 75 Year
  Sex: Male

DRUGS (4)
  1. AVASTIN [Suspect]
     Indication: COLON CANCER
     Dosage: 5 MG/KG, Q2W
     Route: 042
     Dates: start: 20080410, end: 20080703
  2. OXALIPLATIN [Concomitant]
     Indication: COLON CANCER
     Dosage: UNK
     Dates: start: 20080214, end: 20080803
  3. FLUOROURACIL [Suspect]
     Indication: COLON CANCER
     Dosage: UNK
     Dates: start: 20080204, end: 20080704
  4. ISOVORIN [Suspect]
     Indication: COLON CANCER
     Dosage: UNK
     Dates: start: 20080214, end: 20080703

REACTIONS (1)
  - DISSEMINATED INTRAVASCULAR COAGULATION [None]
